FAERS Safety Report 15402976 (Version 1)
Quarter: 2018Q3

REPORT INFORMATION
  Report Type: Spontaneous
  Country: PE (occurrence: PE)
  Receive Date: 20180919
  Receipt Date: 20180919
  Transmission Date: 20181010
  Serious: Yes (Other)
  Sender: FDA-Public Use
  Company Number: PE-ROCHE-2186110

PATIENT
  Sex: Female

DRUGS (1)
  1. AVASTIN [Suspect]
     Active Substance: BEVACIZUMAB
     Indication: LUNG NEOPLASM MALIGNANT
     Route: 042

REACTIONS (7)
  - General physical health deterioration [Unknown]
  - Back pain [Unknown]
  - Ill-defined disorder [Unknown]
  - Suspected counterfeit product [Unknown]
  - Influenza [Recovered/Resolved]
  - Tumour marker increased [Not Recovered/Not Resolved]
  - Metastases to spine [Not Recovered/Not Resolved]
